FAERS Safety Report 20081540 (Version 1)
Quarter: 2021Q4

REPORT INFORMATION
  Report Type: Report from Study
  Country: US (occurrence: US)
  Receive Date: 20211117
  Receipt Date: 20211117
  Transmission Date: 20220303
  Serious: Yes (Hospitalization)
  Sender: FDA-Public Use
  Company Number: US-ABBVIE-21K-163-4085598-00

PATIENT
  Sex: Female

DRUGS (3)
  1. IMBRUVICA [Suspect]
     Active Substance: IBRUTINIB
     Indication: Chronic lymphocytic leukaemia
     Route: 048
     Dates: start: 20210708, end: 2021
  2. IMBRUVICA [Suspect]
     Active Substance: IBRUTINIB
     Dosage: 2 A DAY
     Route: 048
     Dates: start: 20210913, end: 20211108
  3. IMBRUVICA [Suspect]
     Active Substance: IBRUTINIB
     Route: 048
     Dates: start: 20211110

REACTIONS (11)
  - Kidney enlargement [Unknown]
  - Asthenia [Unknown]
  - Diarrhoea [Unknown]
  - Adverse drug reaction [Unknown]
  - Arthropod bite [Recovering/Resolving]
  - Rash [Recovering/Resolving]
  - Diabetes mellitus [Unknown]
  - Laboratory test abnormal [Unknown]
  - Muscle spasms [Unknown]
  - Abdominal pain upper [Not Recovered/Not Resolved]
  - Malaise [Unknown]

NARRATIVE: CASE EVENT DATE: 20210101
